FAERS Safety Report 4370035-6 (Version None)
Quarter: 2004Q2

REPORT INFORMATION
  Report Type: 
  Country: None (occurrence: None)
  Receive Date: 20040525
  Receipt Date: 20040511
  Transmission Date: 20050107
  Serious: Yes (Hospitalization)
  Sender: FDA-Public Use
  Company Number: RENA-11031

PATIENT
  Age: 77 Year
  Sex: Male

DRUGS (14)
  1. RENAGEL [Suspect]
     Indication: HYPERPHOSPHATAEMIA
     Dates: start: 20030923, end: 20031002
  2. SACCHARATED IRON OXIDE [Concomitant]
  3. NEORECORMON [Concomitant]
  4. ALLOPURINOL [Concomitant]
  5. TRANDOLAPRIL [Concomitant]
  6. FUROSEMIDE [Concomitant]
  7. DIGOXIN [Concomitant]
  8. FRAXIPARINE [Concomitant]
  9. HEPARIN CALCIUM [Concomitant]
  10. OMEPRAZOLE [Concomitant]
  11. LORATADINE [Concomitant]
  12. IRON SULPHATE [Concomitant]
  13. SINTROM [Concomitant]
  14. CALCIC NADROPARIN [Concomitant]

REACTIONS (10)
  - ALANINE AMINOTRANSFERASE INCREASED [None]
  - ASPARTATE AMINOTRANSFERASE INCREASED [None]
  - BLOOD ALKALINE PHOSPHATASE INCREASED [None]
  - BLOOD PHOSPHORUS INCREASED [None]
  - CHOLESTASIS [None]
  - GAMMA-GLUTAMYLTRANSFERASE INCREASED [None]
  - HAEMORRHAGE [None]
  - HEPATIC FIBROSIS [None]
  - IRON DEFICIENCY ANAEMIA [None]
  - PRURITUS [None]
